FAERS Safety Report 15559838 (Version 3)
Quarter: 2018Q4

REPORT INFORMATION
  Report Type: Report from Study
  Country: CO (occurrence: CO)
  Receive Date: 20181029
  Receipt Date: 20181121
  Transmission Date: 20190205
  Serious: Yes (Hospitalization)
  Sender: FDA-Public Use
  Company Number: PHHY2018CO068099

PATIENT
  Sex: Female
  Weight: 66 kg

DRUGS (2)
  1. ACETAMINOPHEN. [Concomitant]
     Active Substance: ACETAMINOPHEN
     Indication: PAIN
     Dosage: 5 MG, Q12H
     Route: 048
     Dates: start: 201805
  2. AFINITOR [Suspect]
     Active Substance: EVEROLIMUS
     Indication: BREAST CANCER
     Dosage: 10 MG, QD
     Route: 048
     Dates: start: 20180626

REACTIONS (7)
  - Productive cough [Unknown]
  - Vomiting [Unknown]
  - Bacterial infection [Unknown]
  - Cough [Unknown]
  - Pleural effusion [Unknown]
  - Blister [Unknown]
  - Asphyxia [Unknown]
